FAERS Safety Report 14727599 (Version 1)
Quarter: 2018Q2

REPORT INFORMATION
  Report Type: Spontaneous
  Country: US (occurrence: US)
  Receive Date: 20180402
  Receipt Date: 20180402
  Transmission Date: 20180711
  Serious: Yes (Hospitalization)
  Sender: FDA-Public Use
  Company Number: None

PATIENT
  Age: 32 Year
  Sex: Female

DRUGS (3)
  1. NEORAL [Suspect]
     Active Substance: CYCLOSPORINE
     Indication: CHRONIC KIDNEY DISEASE
     Route: 048
     Dates: start: 20161027
  2. NEORAL [Suspect]
     Active Substance: CYCLOSPORINE
     Indication: CHRONIC KIDNEY DISEASE
     Route: 048
     Dates: start: 20161027
  3. RAPAMUNE [Concomitant]
     Active Substance: SIROLIMUS

REACTIONS (1)
  - Urinary tract infection [None]

NARRATIVE: CASE EVENT DATE: 20180315
